FAERS Safety Report 4577225-8 (Version None)
Quarter: 2005Q1

REPORT INFORMATION
  Report Type: 
  Country: None (occurrence: None)
  Receive Date: 20050209
  Receipt Date: 20050126
  Transmission Date: 20050727
  Serious: Yes (Death)
  Sender: FDA-Public Use
  Company Number: 2004AL000836

PATIENT
  Age: 56 Year
  Sex: Female

DRUGS (5)
  1. PHENYTOIN [Suspect]
     Dosage: PO
     Route: 048
  2. PHENOBARBITAL 20MG/5ML ELIXIR [Suspect]
     Dosage: PO
     Route: 048
  3. PHENOBARBITAL TAB [Suspect]
     Dosage: PO
     Route: 048
  4. LAMOTRIGINE [Suspect]
     Dosage: PO
  5. VENLAFAXINE HCL [Suspect]
     Dosage: PO
     Route: 048

REACTIONS (6)
  - COMA [None]
  - COMPLETED SUICIDE [None]
  - CONVULSION [None]
  - INTENTIONAL MISUSE [None]
  - PNEUMONIA ASPIRATION [None]
  - RHABDOMYOLYSIS [None]
